FAERS Safety Report 6940414-9 (Version None)
Quarter: 2010Q3

REPORT INFORMATION
  Report Type: 
  Country: None (occurrence: None)
  Receive Date: 20100825
  Receipt Date: 20100819
  Transmission Date: 20110219
  Serious: Yes (Hospitalization)
  Sender: FDA-Public Use
  Company Number: US-ELI_LILLY_AND_COMPANY-US201008005536

PATIENT
  Sex: Female
  Weight: 66.8 kg

DRUGS (3)
  1. GEMCITABINE HCL [Suspect]
     Indication: MALIGNANT PERITONEAL NEOPLASM
     Dosage: 1000 MG/M2 (1208 MG), DAYS 1 + 15 EVERY 28 DAYS
     Route: 042
  2. CARBOPLATIN [Suspect]
     Indication: MALIGNANT PERITONEAL NEOPLASM
     Dosage: 3 AUC (265 MG), DAYS 1 + 15 EVERY 28 DAYS
     Route: 042
  3. BEVACIZUMAB [Suspect]
     Indication: MALIGNANT PERITONEAL NEOPLASM
     Dosage: 10 MG/KG (472 MG), DAYS 1 + 15 EVERY 28 DAYS
     Route: 042

REACTIONS (2)
  - ABDOMINAL PAIN [None]
  - INTESTINAL OBSTRUCTION [None]
